FAERS Safety Report 10399305 (Version 1)
Quarter: 2014Q3

REPORT INFORMATION
  Report Type: Spontaneous
  Country: BR (occurrence: None)
  Receive Date: 20140819
  Receipt Date: 20140819
  Transmission Date: 20150326
  Serious: Yes (Hospitalization, Disabling)
  Sender: FDA-Public Use
  Company Number: AUR-APL-2014-08556

PATIENT
  Age: 71 Year
  Sex: Female
  Weight: 76 kg

DRUGS (13)
  1. ATENOLOL 25 MG (ATENOLOL) , 25MG [Suspect]
     Active Substance: ATENOLOL
     Indication: HYPERTENSION
     Route: 048
     Dates: start: 2012
  2. FORXIGA (DAPAGLIFLOZIN) [Suspect]
     Active Substance: DAPAGLIFLOZIN
     Indication: TYPE 2 DIABETES MELLITUS
     Route: 048
     Dates: start: 20140527, end: 20140627
  3. FUROSEMIDE (FUROSEMIDE) [Concomitant]
     Active Substance: FUROSEMIDE
  4. BENERVA (THIAMINE HYDROCHLORIDE) [Concomitant]
  5. ATENSINA (CLONIDINE HYDROCHLORIDE) [Concomitant]
  6. METFORMIN [Suspect]
     Active Substance: METFORMIN HYDROCHLORIDE
     Indication: TYPE 2 DIABETES MELLITUS
     Route: 048
     Dates: start: 1998, end: 2009
  7. TRADJENTA (LINAGLIPTIN) [Concomitant]
  8. RASILEZ [Concomitant]
     Active Substance: ALISKIREN
  9. ALLOPURINOL (ALLOPURINOL) [Concomitant]
     Active Substance: ALLOPURINOL
  10. APRESOLINE (HYDRALAZINE HYDROCHLORIDE) [Concomitant]
  11. OMEPRAZOLE (OMEPRAZOLE) [Suspect]
     Active Substance: OMEPRAZOLE
     Indication: GASTRITIS
     Route: 048
     Dates: start: 2009
  12. ROSUVASTATIN CALCIUM (ROSUVASTATIN CALCIUM) [Suspect]
     Active Substance: ROSUVASTATIN CALCIUM
     Indication: BLOOD TRIGLYCERIDES INCREASED
     Route: 048
     Dates: start: 2012
  13. VITAMIN D (ERGOCALCIFEROL) [Concomitant]
     Active Substance: ERGOCALCIFEROL

REACTIONS (9)
  - Gastritis [None]
  - Drug dose omission [None]
  - Blood triglycerides increased [None]
  - Hyperglycaemia [None]
  - Gait disturbance [None]
  - Femur fracture [None]
  - Renal failure [None]
  - Fall [None]
  - Drug administration error [None]

NARRATIVE: CASE EVENT DATE: 2011
